FAERS Safety Report 10077687 (Version 2)
Quarter: 2014Q2

REPORT INFORMATION
  Report Type: Report from Study
  Country: BR (occurrence: BR)
  Receive Date: 20140414
  Receipt Date: 20140613
  Transmission Date: 20141212
  Serious: Yes (Other)
  Sender: FDA-Public Use
  Company Number: PHHY2014BR044143

PATIENT
  Age: 17 Year
  Sex: Female
  Weight: 55 kg

DRUGS (4)
  1. TRILEPTAL [Suspect]
     Indication: CONVULSION
     Dosage: 2 DF, DAILY (300 MG)
     Route: 048
  2. TRILEPTAL [Suspect]
     Dosage: 2 DF, DAILY (600 MG)
     Route: 048
  3. TRILEPTAL [Suspect]
     Dosage: 2 DF, DAILY (300 MG)
     Route: 048
  4. ARADOIS [Concomitant]
     Indication: RENAL DISORDER
     Dosage: UNK UKN, UNK
     Dates: start: 2004

REACTIONS (4)
  - Hernia [Recovering/Resolving]
  - Oesophageal disorder [Unknown]
  - Dysphagia [Recovered/Resolved]
  - Vomiting [Recovering/Resolving]
